FAERS Safety Report 5143659-6 (Version None)
Quarter: 2006Q4

REPORT INFORMATION
  Report Type: 
  Country: None (occurrence: None)
  Receive Date: 20061103
  Receipt Date: 20060621
  Transmission Date: 20070319
  Serious: Yes (Life-Threatening, Hospitalization)
  Sender: FDA-Public Use
  Company Number: US-BOEHRINGER INGELHEIM PHARMACEUTICALS, INC.-2006-BP-07175BP

PATIENT
  Sex: Female
  Weight: 77.27 kg

DRUGS (4)
  1. VIRAMUNE [Suspect]
     Indication: HIV INFECTION
     Route: 048
     Dates: start: 20060517, end: 20060530
  2. VIRAMUNE [Suspect]
     Dates: start: 20060531, end: 20060603
  3. COMBIVIR [Concomitant]
     Dates: start: 20060517, end: 20060603
  4. COMBIVIR [Concomitant]
     Dates: start: 20060610

REACTIONS (3)
  - CD4 LYMPHOCYTES ABNORMAL [None]
  - DRUG EXPOSURE DURING PREGNANCY [None]
  - STEVENS-JOHNSON SYNDROME [None]
